FAERS Safety Report 7215451-X (Version None)
Quarter: 2011Q1

REPORT INFORMATION
  Report Type: 
  Country: None (occurrence: None)
  Receive Date: 20110107
  Receipt Date: 20101230
  Transmission Date: 20110831
  Serious: Yes (Hospitalization)
  Sender: FDA-Public Use
  Company Number: SE-ROCHE-750940

PATIENT
  Age: 87 Year
  Sex: Female

DRUGS (9)
  1. ENALAPRIL [Suspect]
     Dosage: 20 MGD
     Route: 048
     Dates: start: 20101108
  2. ACETAMINOPHEN [Concomitant]
  3. TORADOL [Suspect]
     Indication: PROPHYLAXIS
     Dosage: 30 MGD
     Route: 058
     Dates: start: 20101108, end: 20101109
  4. MEPROLOL [Concomitant]
  5. XARELTO [Concomitant]
  6. LEVOTHYROXINE SODIUM [Concomitant]
  7. ADRENALIN [Concomitant]
  8. OXYCONTIN [Concomitant]
  9. FRAGMIN [Concomitant]

REACTIONS (2)
  - POST PROCEDURAL HAEMORRHAGE [None]
  - RENAL FAILURE ACUTE [None]
